FAERS Safety Report 13975332 (Version 2)
Quarter: 2017Q4

REPORT INFORMATION
  Report Type: Spontaneous
  Country: US (occurrence: US)
  Receive Date: 20170915
  Receipt Date: 20171120
  Transmission Date: 20180321
  Serious: Yes (Other)
  Sender: FDA-Public Use
  Company Number: US-VISTAPHARM, INC.-VER201709-000601

PATIENT
  Age: 65 Year
  Sex: Male

DRUGS (12)
  1. BUPIVICAINE [Concomitant]
     Active Substance: BUPIVACAINE
     Indication: PAIN
  2. OXYCARBAZEPINE [Concomitant]
     Active Substance: OXCARBAZEPINE
  3. LAMOTRIGINE. [Concomitant]
     Active Substance: LAMOTRIGINE
  4. METHADONE [Concomitant]
     Active Substance: METHADONE HYDROCHLORIDE
  5. OXYCODONE [Concomitant]
     Active Substance: OXYCODONE
     Indication: PAIN
  6. CITALOPRAM [Concomitant]
     Active Substance: CITALOPRAM HYDROBROMIDE
  7. MORPHINE [Suspect]
     Active Substance: MORPHINE
     Indication: PAIN
     Route: 037
     Dates: end: 20121129
  8. MIRTAZEPINE [Concomitant]
     Active Substance: MIRTAZAPINE
  9. CLONIDINE. [Concomitant]
     Active Substance: CLONIDINE
  10. METHADONE [Concomitant]
     Active Substance: METHADONE HYDROCHLORIDE
     Indication: PAIN
     Dates: end: 20130411
  11. HYDROMORPHINE [Concomitant]
     Active Substance: HYDROMORPHONE
     Indication: PAIN
  12. HYDROCODONE [Concomitant]
     Active Substance: HYDROCODONE
     Indication: PAIN

REACTIONS (2)
  - Dementia [Recovered/Resolved]
  - Drug ineffective [Unknown]
